FAERS Safety Report 13868725 (Version 1)
Quarter: 2017Q3

REPORT INFORMATION
  Report Type: Spontaneous
  Country: US (occurrence: US)
  Receive Date: 20170815
  Receipt Date: 20170815
  Transmission Date: 20171127
  Serious: No
  Sender: FDA-Public Use
  Company Number: US-PFIZER INC-2017349510

PATIENT
  Sex: Female

DRUGS (1)
  1. METHOTREXATE SODIUM. [Suspect]
     Active Substance: METHOTREXATE SODIUM
     Dosage: 0.8 ML, WEEKLY (50MG/2 ML SOLUTION 0.8 CC WEEKLY)

REACTIONS (9)
  - Joint stiffness [Unknown]
  - Condition aggravated [Unknown]
  - Joint swelling [Unknown]
  - Pain in extremity [Unknown]
  - Thrombocytosis [Unknown]
  - Inflammation [Unknown]
  - Peripheral swelling [Unknown]
  - Arthralgia [Unknown]
  - Pain [Unknown]
